FAERS Safety Report 5906493-2 (Version None)
Quarter: 2008Q4

REPORT INFORMATION
  Report Type: 
  Country: None (occurrence: None)
  Receive Date: 20081002
  Receipt Date: 20080929
  Transmission Date: 20090506
  Serious: Yes (Other)
  Sender: FDA-Public Use
  Company Number: US-ABBOTT-08P-163-0437275-00

PATIENT
  Sex: Female
  Weight: 88.53 kg

DRUGS (3)
  1. HUMIRA [Suspect]
     Indication: CROHN'S DISEASE
     Dosage: LOADING DOSE
     Route: 058
     Dates: start: 20070801, end: 20070801
  2. HUMIRA [Suspect]
     Route: 058
     Dates: start: 20070801
  3. EMLA [Concomitant]
     Indication: LOCAL ANAESTHESIA
     Route: 061
     Dates: start: 20080101

REACTIONS (2)
  - ABORTION SPONTANEOUS [None]
  - INJECTION SITE PAIN [None]
